FAERS Safety Report 16199862 (Version 1)
Quarter: 2019Q2

REPORT INFORMATION
  Report Type: Spontaneous
  Country: DE (occurrence: DE)
  Receive Date: 20190415
  Receipt Date: 20190415
  Transmission Date: 20190711
  Serious: Yes (Other)
  Sender: FDA-Public Use
  Company Number: PHHY2019DE082981

PATIENT
  Age: 1 Day
  Sex: Female
  Weight: 1.7 kg

DRUGS (8)
  1. AMLODIPINE [Concomitant]
     Active Substance: AMLODIPINE BESYLATE
     Indication: FOETAL EXPOSURE DURING PREGNANCY
     Dosage: MATERNAL DOSE: 10 [MG/D ] (1 TRIMESTER, 0 TO 35 GESTATION WEEK)
     Route: 064
     Dates: start: 20171012, end: 20180614
  2. CELESTAN [Concomitant]
     Active Substance: BETAMETHASONE
     Indication: FOETAL EXPOSURE DURING PREGNANCY
     Dosage: MATERNAL DOSE: (12 [MG/D ], 3 TRIMESTER,35 TO 35.1 GESTATIONAL WEEK)
     Route: 064
     Dates: start: 20180614, end: 20180615
  3. METOPROLOL. [Suspect]
     Active Substance: METOPROLOL
     Indication: FOETAL EXPOSURE DURING PREGNANCY
     Dosage: MATERNAL DOSE:50 [MG/D ], 1 TRIMESTER, 0 TO 35 GESTATION WEEK
     Route: 064
     Dates: start: 20171012, end: 20180614
  4. BAYOTENSIN [Concomitant]
     Active Substance: NITRENDIPINE
     Indication: FOETAL EXPOSURE DURING PREGNANCY
     Dosage: EXPOSURE IN 3 TRIMESTER (34.6 TO 36 GESTATIONAL WEEK))
     Route: 064
  5. SPIRONOLACTONE. [Concomitant]
     Active Substance: SPIRONOLACTONE
     Indication: FOETAL EXPOSURE DURING PREGNANCY
     Dosage: MATERNAL DOSE: (25 [MG/D, 1 TRIMESTER, 0 TO 35 GESTATIONAL WEEK)
     Route: 064
     Dates: start: 20171012, end: 20180614
  6. FENOTEROL [Concomitant]
     Active Substance: FENOTEROL
     Indication: FOETAL EXPOSURE DURING PREGNANCY
     Dosage: 3 TRIMESTER (34.6 TO 36 GESTATIONAL WEEK)
     Route: 064
  7. RAMIPRIL. [Suspect]
     Active Substance: RAMIPRIL
     Indication: FOETAL EXPOSURE DURING PREGNANCY
     Dosage: MATERNAL DOSE: 10 [MG/D ], 1 TRIMESTER, 0 TO 35 GESTATION WEEK
     Route: 064
     Dates: start: 20171012, end: 20180614
  8. METHYLDOPA. [Concomitant]
     Active Substance: METHYLDOPA
     Indication: FOETAL EXPOSURE DURING PREGNANCY
     Dosage: MATERNAL DOSE: (750 MG/D (250-250-250) 3 TRIMESTER, 35.1 TO 36 GESTATIONAL WEEK]
     Route: 064
     Dates: start: 20180615, end: 20180621

REACTIONS (4)
  - Small for dates baby [Recovered/Resolved]
  - Selective eating disorder [Recovered/Resolved]
  - Neonatal respiratory failure [Recovered/Resolved]
  - Microcephaly [Unknown]

NARRATIVE: CASE EVENT DATE: 20180621
